FAERS Safety Report 15832271 (Version 1)
Quarter: 2018Q4

REPORT INFORMATION
  Report Type: Spontaneous
  Country: US (occurrence: US)
  Receive Date: 20181219
  Receipt Date: 20181219
  Transmission Date: 20190205
  Serious: No
  Sender: FDA-Public Use
  Company Number: None

PATIENT
  Sex: Female

DRUGS (13)
  1. HYDROCHLOROT [Concomitant]
     Active Substance: HYDROCHLOROTHIAZIDE
  2. NUCYNTA ER [Concomitant]
     Active Substance: TAPENTADOL HYDROCHLORIDE
  3. 0NDANSETRON [Concomitant]
  4. VITAMIN D [Concomitant]
     Active Substance: CHOLECALCIFEROL
  5. REBIF REBIDOSE [Suspect]
     Active Substance: INTERFERON BETA-1A
     Indication: MULTIPLE SCLEROSIS
     Dosage: ?          OTHER DOSE:8.8MCG WK1-2/22MCG;?
     Route: 058
     Dates: start: 20181117
  6. TIZANIDINE. [Concomitant]
     Active Substance: TIZANIDINE
  7. TOPIRAMATE. [Concomitant]
     Active Substance: TOPIRAMATE
  8. OMEPRAZOLE. [Suspect]
     Active Substance: OMEPRAZOLE
  9. SMZ /TMP DS [Concomitant]
  10. NAPROXEN SOD [Concomitant]
  11. PRODETHAZINE [Concomitant]
  12. HYDROCO /APAP [Concomitant]
  13. METOPROL SUC [Concomitant]

REACTIONS (1)
  - Cerebral disorder [None]
